FAERS Safety Report 12396613 (Version 2)
Quarter: 2016Q3

REPORT INFORMATION
  Report Type: Spontaneous
  Country: US (occurrence: US)
  Receive Date: 20160524
  Receipt Date: 20160711
  Transmission Date: 20161109
  Serious: Yes (Hospitalization, Other)
  Sender: FDA-Public Use
  Company Number: US-SHIRE-US201606210

PATIENT
  Sex: Female
  Weight: 70.75 kg

DRUGS (7)
  1. ATENOLOL. [Concomitant]
     Active Substance: ATENOLOL
     Indication: HYPERTENSION
     Dosage: 50 MG, UNKNOWN
     Route: 065
  2. DEPLIN [Concomitant]
     Active Substance: LEVOMEFOLATE CALCIUM
     Indication: PRODUCT USED FOR UNKNOWN INDICATION
     Dosage: 15 MG, UNKNOWN
     Route: 065
  3. MINASTRIN 24 FE [Concomitant]
     Active Substance: ETHINYL ESTRADIOL\NORETHINDRONE ACETATE
     Indication: CONTRACEPTION
     Dosage: 24 MG, 1X/DAY:QD
     Route: 065
  4. VYVANSE [Suspect]
     Active Substance: LISDEXAMFETAMINE DIMESYLATE
     Indication: MAJOR DEPRESSION
     Dosage: 40 MG, UNKNOWN
  5. VYVANSE [Suspect]
     Active Substance: LISDEXAMFETAMINE DIMESYLATE
     Dosage: 30 MG, UNKNOWN
     Route: 048
  6. VYVANSE [Suspect]
     Active Substance: LISDEXAMFETAMINE DIMESYLATE
     Dosage: 20 MG, UNKNOWN
     Route: 048
  7. PRISTIQ EXTENDED-RELEASE [Concomitant]
     Active Substance: DESVENLAFAXINE SUCCINATE
     Indication: DEPRESSION
     Dosage: 100 MG, UNKNOWN
     Route: 065

REACTIONS (7)
  - Rhabdomyolysis [Recovering/Resolving]
  - Peripheral swelling [Unknown]
  - Product use issue [Not Recovered/Not Resolved]
  - Myalgia [Recovered/Resolved]
  - Wrong technique in product usage process [Unknown]
  - Renal failure [Recovering/Resolving]
  - Chromaturia [Recovered/Resolved]
